FAERS Safety Report 4678382-5 (Version None)
Quarter: 2005Q2

REPORT INFORMATION
  Report Type: 
  Country: None (occurrence: None)
  Receive Date: 20050527
  Receipt Date: 20050517
  Transmission Date: 20051028
  Serious: Yes (Death)
  Sender: FDA-Public Use
  Company Number: MK200505-0192-1

PATIENT
  Age: 2 Year
  Sex: Female

DRUGS (1)
  1. OXYCODONE HCL [Suspect]
     Indication: ACCIDENTAL OVERDOSE

REACTIONS (13)
  - ABDOMINAL PAIN [None]
  - ACCIDENTAL DRUG INTAKE BY CHILD [None]
  - ANAEMIA [None]
  - ANORECTAL DISORDER [None]
  - BRONCHITIS ACUTE [None]
  - BRONCHOPNEUMONIA [None]
  - COORDINATION ABNORMAL [None]
  - DRUG TOXICITY [None]
  - EXCORIATION [None]
  - FATIGUE [None]
  - GAIT DISTURBANCE [None]
  - LOSS OF CONSCIOUSNESS [None]
  - VICTIM OF CHILD ABUSE [None]
